FAERS Safety Report 6179728-1 (Version None)
Quarter: 2009Q2

REPORT INFORMATION
  Report Type: 
  Country: None (occurrence: None)
  Receive Date: 20090505
  Receipt Date: 20090421
  Transmission Date: 20091009
  Serious: Yes (Other)
  Sender: FDA-Public Use
  Company Number: IT-CELGENEUS-083-21880-09042539

PATIENT

DRUGS (4)
  1. REVLIMID [Suspect]
     Indication: MULTIPLE MYELOMA
     Route: 048
  2. THALIDOMIDE [Suspect]
     Indication: MULTIPLE MYELOMA
     Route: 048
  3. MELPHALAN [Suspect]
     Indication: MULTIPLE MYELOMA
     Route: 065
  4. PREDNISONE [Suspect]
     Indication: MULTIPLE MYELOMA
     Route: 065

REACTIONS (6)
  - ANAEMIA [None]
  - FATIGUE [None]
  - INFECTION [None]
  - NERVOUS SYSTEM DISORDER [None]
  - NEUTROPENIA [None]
  - THROMBOCYTOPENIA [None]
